FAERS Safety Report 5990054-3 (Version None)
Quarter: 2008Q4

REPORT INFORMATION
  Report Type: 
  Country: None (occurrence: None)
  Receive Date: 20081209
  Receipt Date: 20081124
  Transmission Date: 20090506
  Serious: Yes (Disabling, Other)
  Sender: FDA-Public Use
  Company Number: 2008AL011983

PATIENT
  Age: 53 Year
  Sex: Female

DRUGS (2)
  1. PHENYTOIN [Suspect]
     Dosage: 100 MG; TID; PO
     Route: 048
     Dates: start: 20080822, end: 20080917
  2. DILANTIN [Concomitant]

REACTIONS (5)
  - DYSPHAGIA [None]
  - PERFORMANCE STATUS DECREASED [None]
  - SEDATION [None]
  - UNEVALUABLE EVENT [None]
  - WRONG TECHNIQUE IN DRUG USAGE PROCESS [None]
